FAERS Safety Report 21686957 (Version 1)
Quarter: 2022Q4

REPORT INFORMATION
  Report Type: Report from Study
  Country: GB (occurrence: GB)
  Receive Date: 20221206
  Receipt Date: 20221206
  Transmission Date: 20230113
  Serious: No
  Sender: FDA-Public Use
  Company Number: GB-GBT-015971

PATIENT
  Age: 30 Year
  Sex: Female

DRUGS (2)
  1. VOXELOTOR [Suspect]
     Active Substance: VOXELOTOR
     Indication: Sickle cell anaemia with crisis
     Dosage: 500MG TABLETS
     Dates: start: 20220810
  2. transfusion [Concomitant]
     Indication: Sickle cell anaemia with crisis
     Dosage: 10 RED BLOOD CELL UNITS TRANSFUSED OVER THE LAST 12 MONTHS
     Dates: start: 20220427

REACTIONS (1)
  - Nausea [Unknown]
